FAERS Safety Report 6261669-2 (Version None)
Quarter: 2009Q3

REPORT INFORMATION
  Report Type: 
  Country: None (occurrence: None)
  Receive Date: 20090707
  Receipt Date: 20090707
  Transmission Date: 20100115
  Serious: Yes (Hospitalization)
  Sender: FDA-Public Use
  Company Number: None

PATIENT
  Age: 66 Year
  Sex: Male

DRUGS (1)
  1. LISINOPRIL [Suspect]
     Indication: HYPERTENSION
     Dosage: 5 MG EVERY DAY PO
     Route: 048
     Dates: start: 19991015, end: 20090521

REACTIONS (5)
  - ANGIOEDEMA [None]
  - DYSPHAGIA [None]
  - LARYNGEAL OEDEMA [None]
  - SPEECH DISORDER [None]
  - TONGUE OEDEMA [None]
